FAERS Safety Report 8746210 (Version 5)
Quarter: 2013Q3

REPORT INFORMATION
  Report Type: Report from Study
  Country: NZ (occurrence: NZ)
  Receive Date: 20120827
  Receipt Date: 20130805
  Transmission Date: 20140515
  Serious: Yes (Hospitalization, Other)
  Sender: FDA-Public Use
  Company Number: PHHY2012NZ073145

PATIENT
  Age: 82 Year
  Sex: Female

DRUGS (3)
  1. GLIVEC [Suspect]
     Indication: CHRONIC MYELOID LEUKAEMIA
     Dosage: 400 MG, DAILY
     Route: 048
     Dates: start: 20111001
  2. MORPHINE [Concomitant]
  3. PANADOL [Concomitant]

REACTIONS (17)
  - Spinal cord disorder [Unknown]
  - Hypoaesthesia [Unknown]
  - Hemiplegia [Unknown]
  - Intervertebral disc protrusion [Unknown]
  - Gait disturbance [Unknown]
  - Blood test abnormal [Unknown]
  - Mobility decreased [Unknown]
  - Pain in extremity [Unknown]
  - Musculoskeletal pain [Unknown]
  - Bone pain [Unknown]
  - Fatigue [Unknown]
  - Asthenia [Unknown]
  - Headache [Unknown]
  - Nausea [Unknown]
  - Rash [Unknown]
  - Contusion [Not Recovered/Not Resolved]
  - Anaemia [Unknown]
